FAERS Safety Report 6118254-2 (Version None)
Quarter: 2009Q1

REPORT INFORMATION
  Report Type: 
  Country: None (occurrence: None)
  Receive Date: 20090314
  Receipt Date: 20090211
  Transmission Date: 20090719
  Serious: No
  Sender: FDA-Public Use
  Company Number: US-ABBOTT-09P-163-0503324-00

PATIENT
  Sex: Female
  Weight: 68.1 kg

DRUGS (9)
  1. HUMIRA [Suspect]
     Indication: CROHN'S DISEASE
     Route: 058
     Dates: start: 20080901, end: 20081001
  2. HUMIRA [Suspect]
     Route: 058
     Dates: start: 20081001
  3. CIPROFLOXACIN HCL [Concomitant]
     Indication: PROPHYLAXIS
     Route: 048
  4. WELLBUTRIN [Concomitant]
     Indication: ANTIDEPRESSANT THERAPY
     Route: 048
  5. PROBIOTIC [Concomitant]
     Indication: CROHN'S DISEASE
     Route: 048
  6. IRON [Concomitant]
     Indication: ANAEMIA
     Route: 048
  7. MIRALAX [Concomitant]
     Indication: DRUG USE FOR UNKNOWN INDICATION
  8. PREDNISONE [Concomitant]
     Indication: CROHN'S DISEASE
     Dates: end: 20081001
  9. PREDNISONE [Concomitant]
     Indication: ERYTHEMA NODOSUM

REACTIONS (2)
  - DRUG INEFFECTIVE [None]
  - ERYTHEMA NODOSUM [None]
